FAERS Safety Report 7270998-5 (Version None)
Quarter: 2011Q1

REPORT INFORMATION
  Report Type: 
  Country: None (occurrence: None)
  Receive Date: 20110202
  Receipt Date: 20110127
  Transmission Date: 20110831
  Serious: No
  Sender: FDA-Public Use
  Company Number: FR-PFIZER INC-2010057161

PATIENT
  Age: 5 Year
  Sex: Male
  Weight: 16.8 kg

DRUGS (3)
  1. TEMOZOLOMIDE [Suspect]
     Indication: MEDULLOBLASTOMA RECURRENT
     Dosage: 55 MG DAILY (DAYS1-5), EVERY 3 WEEKS
     Route: 048
     Dates: start: 20100301, end: 20100410
  2. JOSACIN [Concomitant]
     Indication: COUGH
     Dosage: 500 MG, 2X/DAY
     Route: 048
     Dates: start: 20100505, end: 20100512
  3. IRINOTECAN HCL [Suspect]
     Indication: MEDULLOBLASTOMA RECURRENT
     Dosage: 5.5 MG DAILY (DAYS 1-5,8-12) EVERY 3 WEEKS
     Route: 042
     Dates: start: 20100301, end: 20100417

REACTIONS (1)
  - BRONCHITIS [None]
